FAERS Safety Report 6796228-6 (Version None)
Quarter: 2010Q2

REPORT INFORMATION
  Report Type: 
  Country: None (occurrence: None)
  Receive Date: 20100624
  Receipt Date: 20100624
  Transmission Date: 20101027
  Serious: Yes (Other)
  Sender: FDA-Public Use
  Company Number: None

PATIENT
  Sex: Female
  Weight: 68.0396 kg

DRUGS (1)
  1. PREVACID [Suspect]
     Indication: DYSPEPSIA
     Dates: start: 20100610, end: 20100621

REACTIONS (3)
  - DIZZINESS POSTURAL [None]
  - EPISTAXIS [None]
  - PRESYNCOPE [None]
